FAERS Safety Report 9215125 (Version 2)
Quarter: 2013Q2

REPORT INFORMATION
  Report Type: Spontaneous
  Country: BR (occurrence: BR)
  Receive Date: 20130405
  Receipt Date: 20130514
  Transmission Date: 20140414
  Serious: Yes (Other)
  Sender: FDA-Public Use
  Company Number: BR-ELI_LILLY_AND_COMPANY-BR201303009299

PATIENT
  Age: 60 Year
  Sex: Female
  Weight: 74 kg

DRUGS (7)
  1. FORTEO [Suspect]
     Indication: OSTEOPOROSIS
     Dosage: 20 UG, QD
     Route: 058
     Dates: start: 201203
  2. RIVOTRIL [Concomitant]
     Dosage: UNK, UNKNOWN
     Route: 065
  3. DEPAKENE [Concomitant]
     Indication: CONVULSION
     Dosage: 500 MG, TID
     Route: 065
  4. GARDENAL [Concomitant]
     Indication: CONVULSION
     Dosage: 100 MG, QD
     Route: 065
  5. OMEPRAZOL [Concomitant]
     Dosage: UNK, UNKNOWN
     Route: 065
  6. ARTRODAR [Concomitant]
     Indication: OSTEOARTHRITIS
     Dosage: 50 MG, BID
     Route: 065
  7. CALCITRIOL [Concomitant]
     Dosage: 0.25 MG, QD
     Route: 065

REACTIONS (7)
  - Injury [Unknown]
  - Transient global amnesia [Recovered/Resolved]
  - Cerebrovascular accident [Unknown]
  - Transient ischaemic attack [Unknown]
  - Nervousness [Unknown]
  - Fall [Unknown]
  - Feeling abnormal [Unknown]
